FAERS Safety Report 10212982 (Version 2)
Quarter: 2014Q2

REPORT INFORMATION
  Report Type: Spontaneous
  Country: BR (occurrence: BR)
  Receive Date: 20140602
  Receipt Date: 20140619
  Transmission Date: 20141212
  Serious: Yes (Other)
  Sender: FDA-Public Use
  Company Number: PHHY2014BR062660

PATIENT
  Age: 93 Year
  Sex: Male
  Weight: 75 kg

DRUGS (2)
  1. DIOVAN AMLO FIX [Suspect]
     Indication: HYPERTENSION
     Dosage: 1 DF, QOD MORNING (VALS 160 MG, AMLO 5 MG)
     Route: 048
  2. DIOVAN AMLO FIX [Suspect]
     Dosage: 1 DF, DAILY (VALS 160 MG, AMLO 5 MG)
     Route: 048

REACTIONS (7)
  - Urinary tract obstruction [Recovering/Resolving]
  - Device related infection [Recovered/Resolved]
  - Prostatic disorder [Recovering/Resolving]
  - Blood pressure diastolic decreased [Recovered/Resolved]
  - Blood pressure fluctuation [Not Recovered/Not Resolved]
  - Oedema peripheral [Recovering/Resolving]
  - Drug ineffective [Not Recovered/Not Resolved]
